FAERS Safety Report 4574123-0 (Version None)
Quarter: 2005Q1

REPORT INFORMATION
  Report Type: 
  Country: None (occurrence: None)
  Receive Date: 20050208
  Receipt Date: 20041022
  Transmission Date: 20050727
  Serious: No
  Sender: FDA-Public Use
  Company Number: US-GLAXOSMITHKLINE-A0530886A

PATIENT
  Age: 44 Year
  Sex: Male

DRUGS (2)
  1. PAXIL [Suspect]
     Dosage: 40MG PER DAY
     Route: 048
     Dates: start: 20020101
  2. TRILEPTAL [Concomitant]

REACTIONS (2)
  - AGITATION [None]
  - INSOMNIA [None]
